FAERS Safety Report 5465013-X (Version None)
Quarter: 2007Q3

REPORT INFORMATION
  Report Type: 
  Country: None (occurrence: None)
  Receive Date: 20070820
  Receipt Date: 20070515
  Transmission Date: 20080115
  Serious: No
  Sender: FDA-Public Use
  Company Number: TPA2007A01001

PATIENT
  Age: 56 Year
  Sex: Male
  Weight: 113.3993 kg

DRUGS (3)
  1. ROZEREM [Suspect]
     Indication: INSOMNIA
     Dosage: 8 MG, HS, PER ORAL   16 MG, HS, PER ORAL
     Route: 048
     Dates: start: 20070401
  2. ROZEREM [Suspect]
     Indication: INSOMNIA
     Dosage: 8 MG, HS, PER ORAL   16 MG, HS, PER ORAL
     Route: 048
     Dates: start: 20070401
  3. COREG [Concomitant]

REACTIONS (2)
  - INITIAL INSOMNIA [None]
  - OVERDOSE [None]
